FAERS Safety Report 15560615 (Version 1)
Quarter: 2018Q4

REPORT INFORMATION
  Report Type: Report from Study
  Country: US (occurrence: US)
  Receive Date: 20181029
  Receipt Date: 20181029
  Transmission Date: 20190205
  Serious: Yes (Other)
  Sender: FDA-Public Use
  Company Number: US-UCBSA-2018046832

PATIENT
  Sex: Male
  Weight: 75 kg

DRUGS (2)
  1. LACOSAMIDE. [Suspect]
     Active Substance: LACOSAMIDE
     Indication: SEIZURE
     Dosage: UNK UNK, 2X/DAY (BID)
     Route: 048
     Dates: start: 2017
  2. KEPPRA [Suspect]
     Active Substance: LEVETIRACETAM
     Indication: SEIZURE
     Dosage: UNK UNK, 2X/DAY (BID)
     Route: 048
     Dates: start: 2017, end: 2017

REACTIONS (4)
  - Anaemia [Not Recovered/Not Resolved]
  - Seizure [Unknown]
  - Rash [Recovering/Resolving]
  - Product dose omission [Unknown]

NARRATIVE: CASE EVENT DATE: 2017
